FAERS Safety Report 24000894 (Version 1)
Quarter: 2024Q2

REPORT INFORMATION
  Report Type: Spontaneous
  Country: CN (occurrence: CN)
  Receive Date: 20240621
  Receipt Date: 20240621
  Transmission Date: 20240715
  Serious: Yes (Hospitalization, Other)
  Sender: FDA-Public Use
  Company Number: None

PATIENT
  Age: 36 Year
  Sex: Female

DRUGS (4)
  1. CYCLOPHOSPHAMIDE [Suspect]
     Active Substance: CYCLOPHOSPHAMIDE
     Indication: Cutaneous T-cell lymphoma
     Dosage: 1.19 G, ONE TIME IN ONE DAY, DILUTED WITH SODIUM CHLORIDE 20 ML
     Route: 042
     Dates: start: 20240607, end: 20240607
  2. SODIUM CHLORIDE [Suspect]
     Active Substance: SODIUM CHLORIDE
     Indication: Medication dilution
     Dosage: 20 ML, ONE TIME IN ONE DAY, USED TO DILUTE 1.19 G OF CYCLOPHOSPHAMIDE
     Route: 042
     Dates: start: 20240607, end: 20240607
  3. SODIUM CHLORIDE [Suspect]
     Active Substance: SODIUM CHLORIDE
     Dosage: 500 ML, ONE TIME IN ONE DAY, USED TO DILUTE 0.1 G OF ETOPOSIDE
     Route: 041
     Dates: start: 20240607, end: 20240607
  4. ETOPOSIDE [Suspect]
     Active Substance: ETOPOSIDE
     Indication: Cutaneous T-cell lymphoma
     Dosage: 0.1 G, ONE TIME IN ONE DAY, DILTUED WITH SODIUM CHLORIDE 500 ML
     Route: 041
     Dates: start: 20240607, end: 20240607

REACTIONS (2)
  - Myelosuppression [Unknown]
  - White blood cell count decreased [Unknown]

NARRATIVE: CASE EVENT DATE: 20240611
